FAERS Safety Report 16825086 (Version 1)
Quarter: 2019Q3

REPORT INFORMATION
  Report Type: Spontaneous
  Country: DE (occurrence: DE)
  Receive Date: 20190919
  Receipt Date: 20190919
  Transmission Date: 20191005
  Serious: No
  Sender: FDA-Public Use
  Company Number: DE-LUPIN PHARMACEUTICALS INC.-2019-05553

PATIENT
  Age: 9 Month
  Sex: Male

DRUGS (4)
  1. NERIDRONATE SODIUM [Concomitant]
     Indication: FIBRODYSPLASIA OSSIFICANS PROGRESSIVA
     Dosage: 02 MILLIGRAM/KILOGRAM (EVERY 3 MONTHS)
     Route: 042
  2. MONTELUKAST [Concomitant]
     Active Substance: MONTELUKAST SODIUM
     Indication: FIBRODYSPLASIA OSSIFICANS PROGRESSIVA
     Dosage: 04 MILLIGRAM, QD
     Route: 048
  3. IMATINIB MESYLATE. [Suspect]
     Active Substance: IMATINIB MESYLATE
     Indication: FIBRODYSPLASIA OSSIFICANS PROGRESSIVA
     Dosage: UNK
     Route: 065
  4. PREDNISOLONE. [Concomitant]
     Active Substance: PREDNISOLONE
     Indication: FIBRODYSPLASIA OSSIFICANS PROGRESSIVA
     Dosage: 20 MILLIGRAM/KILOGRAM, UNK
     Route: 042

REACTIONS (1)
  - Off label use [Unknown]
